FAERS Safety Report 17539452 (Version 5)
Quarter: 2024Q2

REPORT INFORMATION
  Report Type: Spontaneous
  Country: US (occurrence: US)
  Receive Date: 20200313
  Receipt Date: 20240610
  Transmission Date: 20240717
  Serious: Yes (Death, Disabling, Other)
  Sender: FDA-Public Use
  Company Number: US-PFIZER INC-2020109128

PATIENT
  Age: 46 Year
  Sex: Female
  Weight: 56.689 kg

DRUGS (1)
  1. CYTARABINE [Suspect]
     Active Substance: CYTARABINE
     Indication: Leukaemia
     Dosage: 400 ML
     Route: 042
     Dates: start: 20200218

REACTIONS (17)
  - Death [Fatal]
  - Occupational exposure to product [Recovered/Resolved]
  - Exposure via skin contact [Recovered/Resolved]
  - Headache [Recovered/Resolved]
  - Oropharyngeal pain [Recovered/Resolved]
  - Arthralgia [Recovered/Resolved]
  - Dyspnoea [Recovered/Resolved]
  - Fatigue [Recovered/Resolved]
  - Upper-airway cough syndrome [Recovered/Resolved]
  - Hair colour changes [Recovered/Resolved]
  - Vocal cord disorder [Recovered/Resolved]
  - Ageusia [Recovered/Resolved]
  - Dysgeusia [Recovered/Resolved]
  - Soft tissue injury [Recovering/Resolving]
  - Rotator cuff syndrome [Recovering/Resolving]
  - Parosmia [Recovering/Resolving]
  - Aphonia [Unknown]

NARRATIVE: CASE EVENT DATE: 20200218
